FAERS Safety Report 17335541 (Version 2)
Quarter: 2020Q1

REPORT INFORMATION
  Report Type: Spontaneous
  Country: CH (occurrence: CH)
  Receive Date: 20200128
  Receipt Date: 20200204
  Transmission Date: 20200409
  Serious: Yes (Hospitalization, Other)
  Sender: FDA-Public Use
  Company Number: CH-MYLANLABS-2020M1010881

PATIENT
  Age: 63 Year
  Sex: Male
  Weight: 87.4 kg

DRUGS (18)
  1. ALDACTONE [Interacting]
     Active Substance: SPIRONOLACTONE
     Indication: PRODUCT USED FOR UNKNOWN INDICATION
     Dosage: 150 MILLIGRAM, QD, 150 MG 1-0-0
  2. METOLAZON [Concomitant]
     Active Substance: METOLAZONE
     Dosage: 2.5 MILLIGRAM, QD
     Dates: start: 20191210
  3. TRIATEC                            /00885601/ [Interacting]
     Active Substance: RAMIPRIL
     Indication: PRODUCT USED FOR UNKNOWN INDICATION
     Dosage: 1.25 MILLIGRAM, QD, 1-0-0
     Route: 048
     Dates: start: 20191206, end: 20191209
  4. TRIATEC                            /00885601/ [Interacting]
     Active Substance: RAMIPRIL
     Dosage: 1.25 MILLIGRAM, QD
     Route: 048
     Dates: start: 20191214, end: 20191218
  5. UPTRAVI [Interacting]
     Active Substance: SELEXIPAG
     Indication: PULMONARY ARTERIAL HYPERTENSION
     Dosage: 1.2 MILLIGRAM, BID
     Route: 048
     Dates: start: 201904
  6. METOLAZON [Concomitant]
     Active Substance: METOLAZONE
     Dosage: AS NECESSARY, 5 MG ?-0-0 PRN
  7. EUTHYROX [Concomitant]
     Active Substance: LEVOTHYROXINE SODIUM
     Dosage: 50 MICROGRAM, QD, 1-0-0
  8. ADEMPAS [Interacting]
     Active Substance: RIOCIGUAT
     Indication: PULMONARY ARTERIAL HYPERTENSION
     Dosage: 2.5 MILLIGRAM, Q8H
     Route: 048
     Dates: start: 201910
  9. OPSUMIT [Interacting]
     Active Substance: MACITENTAN
     Indication: PULMONARY ARTERIAL HYPERTENSION
     Dosage: 10 MILLIGRAM, QD
  10. VELMETIA [Concomitant]
     Active Substance: METFORMIN\SITAGLIPTIN
     Dosage: 1 DOSAGE FORM, QD
     Dates: start: 201903, end: 20191210
  11. PREDNISON GALEPHARM [Concomitant]
     Active Substance: PREDNISONE
     Dosage: 10 MILLIGRAM, QD
     Dates: start: 20191206
  12. TOREM [Suspect]
     Active Substance: TORSEMIDE
     Indication: PRODUCT USED FOR UNKNOWN INDICATION
     Dosage: 100 MILLIGRAM, BID, 200 MG 1/2-0-1/2
     Route: 048
  13. ASPIRIN CARDIO [Concomitant]
     Active Substance: ASPIRIN
  14. PANTOZOL [Concomitant]
     Active Substance: PANTOPRAZOLE SODIUM
     Dosage: 40 MILLIGRAM, QD
     Dates: start: 201910
  15. VENLAFAXIN MEPHA [Concomitant]
     Dosage: 37.5 MILLIGRAM, QD, 37.5 MG 1-0-0
     Dates: end: 20191206
  16. CONCOR COR [Interacting]
     Active Substance: BISOPROLOL FUMARATE
     Indication: PRODUCT USED FOR UNKNOWN INDICATION
     Dosage: 2.5 MILLIGRAM, QD, 1-0-0
     Route: 048
     Dates: start: 20191206, end: 20191209
  17. ZYLORIC [Concomitant]
     Active Substance: ALLOPURINOL
     Dosage: 300 MILLIGRAM, QD 300 MG 1-0-0
     Dates: end: 20191210
  18. PREDNISON GALEPHARM [Concomitant]
     Active Substance: PREDNISONE
     Dosage: 20 MILLIGRAM, QD, 5 MG 2-0-0-(20 MG PER DAY)
     Dates: start: 20191105, end: 20191205

REACTIONS (3)
  - Hypotension [Recovered/Resolved]
  - Acute kidney injury [Recovered/Resolved]
  - Drug interaction [Recovered/Resolved]

NARRATIVE: CASE EVENT DATE: 20191206
